FAERS Safety Report 4273032-4 (Version None)
Quarter: 2004Q1

REPORT INFORMATION
  Report Type: 
  Country: None (occurrence: None)
  Receive Date: 20040114
  Receipt Date: 20040102
  Transmission Date: 20041129
  Serious: Yes (Life-Threatening, Hospitalization, Disabling)
  Sender: FDA-Public Use
  Company Number: F01200400011

PATIENT
  Age: 60 Year
  Sex: Female

DRUGS (2)
  1. (OXALIPLATIN) - SOLUTION - 130MG /M2 [Suspect]
     Indication: COLORECTAL CANCER METASTATIC
     Dosage: 204 MG Q3W
     Route: 042
     Dates: start: 20031218, end: 20031218
  2. (CAPECITABINE) - TABLET - 1000 MG/M2 [Suspect]
     Dosage: 1000 MG/M2 TWICE DAILY FROM DAY 1 TO DAY 15, Q3W
     Route: 048
     Dates: start: 20031218, end: 20031228

REACTIONS (1)
  - CEREBRAL ISCHAEMIA [None]
